FAERS Safety Report 7770367-5 (Version None)
Quarter: 2011Q3

REPORT INFORMATION
  Report Type: 
  Country: None (occurrence: None)
  Receive Date: 20110922
  Receipt Date: 20110411
  Transmission Date: 20111222
  Serious: No
  Sender: FDA-Public Use
  Company Number: US-ASTRAZENECA-2011SE20387

PATIENT
  Age: 18 Year
  Sex: Female
  Weight: 76.2 kg

DRUGS (4)
  1. NUVARING [Concomitant]
  2. SEROQUEL [Suspect]
     Route: 048
  3. SEROQUEL [Suspect]
     Indication: BIPOLAR DISORDER
     Route: 048
     Dates: start: 20110101, end: 20110101
  4. DEPAKOTE [Concomitant]

REACTIONS (1)
  - HYPERSOMNIA [None]
